FAERS Safety Report 12823280 (Version 1)
Quarter: 2016Q4

REPORT INFORMATION
  Report Type: Spontaneous
  Country: US (occurrence: US)
  Receive Date: 20161006
  Receipt Date: 20161006
  Transmission Date: 20170207
  Serious: Yes (Disabling)
  Sender: FDA-Public Use
  Company Number: None

PATIENT
  Age: 13 Year
  Sex: Female

DRUGS (1)
  1. DIHYDROERGOTAMINE [Suspect]
     Active Substance: DIHYDROERGOTAMINE
     Indication: HEADACHE
     Dates: start: 20160426, end: 20160427

REACTIONS (4)
  - Hypermetropia [None]
  - Accommodation disorder [None]
  - Myopia [None]
  - Vision blurred [None]

NARRATIVE: CASE EVENT DATE: 20160427
